FAERS Safety Report 9097056 (Version 1)
Quarter: 2013Q1

REPORT INFORMATION
  Report Type: Spontaneous
  Country: AR (occurrence: None)
  Receive Date: 20130125
  Receipt Date: 20130125
  Transmission Date: 20140127
  Serious: Yes (Hospitalization)
  Sender: FDA-Public Use
  Company Number: 2013P1000786

PATIENT
  Age: 34 Year
  Sex: Female

DRUGS (5)
  1. LEVOFLOXACIN [Suspect]
     Dosage: ?UNKNOWN  -  UNKNOWN
  2. CYCLOSERINE [Suspect]
     Dosage: ?UNKNOWN  -  UNKNOWN
  3. ETHIONAMIDE [Suspect]
     Dosage: ?UNKNOWN  -  UNKNOWN
  4. PARA-AMINOSALICYLIC ACID [Suspect]
     Dosage: ?UNKNOWN  -  UNKNOWN
  5. MOXIFLOXACIN [Suspect]
     Dosage: ?UNKNOWN  - UNKNOWN

REACTIONS (2)
  - Hepatitis toxic [None]
  - Drug reaction with eosinophilia and systemic symptoms [None]
